FAERS Safety Report 6058311-2 (Version None)
Quarter: 2009Q1

REPORT INFORMATION
  Report Type: 
  Country: None (occurrence: None)
  Receive Date: 20090130
  Receipt Date: 20090121
  Transmission Date: 20090719
  Serious: Yes (Disabling, Other)
  Sender: FDA-Public Use
  Company Number: PL-AMGEN-UK328909

PATIENT
  Sex: Female
  Weight: 73.2 kg

DRUGS (19)
  1. ARANESP [Suspect]
     Indication: DIALYSIS
     Route: 058
     Dates: start: 20060808, end: 20070104
  2. ARANESP [Suspect]
     Route: 058
     Dates: start: 20070105, end: 20070926
  3. ARANESP [Suspect]
     Route: 058
     Dates: start: 20070927, end: 20080109
  4. ARANESP [Suspect]
     Route: 058
     Dates: start: 20080110, end: 20080722
  5. ARANESP [Suspect]
     Route: 058
     Dates: start: 20080722, end: 20081125
  6. MIMPARA [Concomitant]
     Indication: HYPERPARATHYROIDISM SECONDARY
     Route: 048
     Dates: start: 20060911
  7. CALCIUM [Concomitant]
     Route: 048
     Dates: start: 20081020
  8. PERINDOPRIL [Concomitant]
     Route: 048
     Dates: start: 20081020
  9. RISPERIDONE [Concomitant]
     Route: 048
     Dates: start: 20060808
  10. DIAZEPAM [Concomitant]
     Route: 048
     Dates: start: 20060808
  11. AMLODIPINE [Concomitant]
     Route: 048
     Dates: start: 20081020, end: 20081031
  12. HUMULIN N [Concomitant]
     Route: 058
     Dates: start: 20081020
  13. PERAZINE [Concomitant]
     Route: 048
     Dates: start: 20080301
  14. FERROUS SULPHATE [Concomitant]
  15. PERAZINE [Concomitant]
     Route: 048
     Dates: start: 20080417
  16. PANTOPRAZOLE SODIUM [Concomitant]
     Route: 048
     Dates: start: 20081020
  17. FORMOTEROL FUMARATE [Concomitant]
     Dates: start: 20081020
  18. BUDESONIDE [Concomitant]
     Dates: start: 20081020
  19. ATROVENT [Concomitant]
     Dates: start: 20081020

REACTIONS (2)
  - ANAEMIA [None]
  - APLASIA PURE RED CELL [None]
